FAERS Safety Report 10389788 (Version 1)
Quarter: 2014Q3

REPORT INFORMATION
  Report Type: Spontaneous
  Country: JP (occurrence: JP)
  Receive Date: 20140818
  Receipt Date: 20140818
  Transmission Date: 20150326
  Serious: Yes (Hospitalization)
  Sender: FDA-Public Use
  Company Number: JP-JNJFOC-20140806350

PATIENT
  Age: 74 Year
  Sex: Female

DRUGS (3)
  1. FLORID 2% [Suspect]
     Active Substance: MICONAZOLE
     Route: 049
  2. FLORID 2% [Suspect]
     Active Substance: MICONAZOLE
     Indication: ORAL CANDIDIASIS
     Route: 049
  3. WARFARIN POTASSIUM [Interacting]
     Active Substance: WARFARIN POTASSIUM
     Indication: AORTIC DILATATION
     Route: 048

REACTIONS (4)
  - Coagulopathy [Not Recovered/Not Resolved]
  - Haematuria [Unknown]
  - Haemorrhage subcutaneous [Unknown]
  - Drug interaction [Unknown]
